FAERS Safety Report 6826528-2 (Version None)
Quarter: 2010Q3

REPORT INFORMATION
  Report Type: 
  Country: None (occurrence: None)
  Receive Date: 20100709
  Receipt Date: 20100629
  Transmission Date: 20110219
  Serious: Yes (Hospitalization)
  Sender: FDA-Public Use
  Company Number: PHHY2010IT28162

PATIENT
  Sex: Female

DRUGS (8)
  1. VOLTAREN [Suspect]
     Indication: MUSCULOSKELETAL PAIN
     Dosage: 1 DF, QD
     Route: 048
     Dates: start: 20100423, end: 20100423
  2. GLUCOPHAGE [Concomitant]
     Indication: DIABETES MELLITUS
  3. GLYBURIDE [Concomitant]
     Indication: DIABETES MELLITUS
     Route: 048
  4. ANTRA [Concomitant]
  5. LEXOTAN [Concomitant]
     Indication: ANXIETY
  6. PLENDIL [Concomitant]
     Indication: HYPERTENSION
  7. ENAPREN [Concomitant]
     Indication: HYPERTENSION
  8. FLUSS [Concomitant]
     Indication: HYPERTENSION

REACTIONS (3)
  - CHEST PAIN [None]
  - HYPERHIDROSIS [None]
  - HYPOTENSION [None]
